FAERS Safety Report 10502355 (Version 2)
Quarter: 2014Q4

REPORT INFORMATION
  Report Type: Spontaneous
  Country: US (occurrence: US)
  Receive Date: 20141007
  Receipt Date: 20141120
  Transmission Date: 20150528
  Serious: Yes (Death, Life-Threatening, Hospitalization, Other)
  Sender: FDA-Public Use
  Company Number: US-GILEAD-2014-0117176

PATIENT
  Age: 62 Year
  Sex: Male
  Weight: 90.7 kg

DRUGS (10)
  1. SOVALDI [Suspect]
     Active Substance: SOFOSBUVIR
     Indication: HEPATITIS C
     Dosage: 400 MG, QD
     Route: 065
     Dates: start: 20140813, end: 20140904
  2. SPIRIVA [Concomitant]
     Active Substance: TIOTROPIUM BROMIDE MONOHYDRATE
  3. LOSARTAN [Concomitant]
     Active Substance: LOSARTAN
  4. IBUPROFEN. [Concomitant]
     Active Substance: IBUPROFEN
  5. MULTIVITAMINS [Concomitant]
     Active Substance: VITAMINS
  6. OLYSIO [Suspect]
     Active Substance: SIMEPREVIR
     Indication: HEPATITIS C
     Dosage: 150 MG, QD
     Route: 065
     Dates: start: 20140813, end: 20140904
  7. METOPROLOL [Concomitant]
     Active Substance: METOPROLOL
  8. ALBUTEROL                          /00139501/ [Concomitant]
     Active Substance: ALBUTEROL
  9. SYMBICORT [Concomitant]
     Active Substance: BUDESONIDE\FORMOTEROL FUMARATE DIHYDRATE
  10. PROAIR HFA [Concomitant]
     Active Substance: ALBUTEROL SULFATE

REACTIONS (4)
  - Blood bilirubin increased [Fatal]
  - Jaundice [Fatal]
  - Hepatorenal failure [Fatal]
  - Off label use [Recovered/Resolved]

NARRATIVE: CASE EVENT DATE: 20140813
